FAERS Safety Report 14992040 (Version 1)
Quarter: 2018Q2

REPORT INFORMATION
  Report Type: Report from Study
  Country: CA (occurrence: CA)
  Receive Date: 20180608
  Receipt Date: 20180608
  Transmission Date: 20180711
  Serious: Yes (Other)
  Sender: FDA-Public Use
  Company Number: CA-ACTELION-A-NJ2018-173584

PATIENT
  Age: 76 Year
  Sex: Female

DRUGS (22)
  1. CALCIUM [Concomitant]
     Active Substance: CALCIUM
  2. AZATHIOPRINE. [Concomitant]
     Active Substance: AZATHIOPRINE
  3. FOLIC ACID. [Concomitant]
     Active Substance: FOLIC ACID
  4. MORPHINE [Concomitant]
     Active Substance: MORPHINE
  5. LORAZEPAM. [Concomitant]
     Active Substance: LORAZEPAM
  6. CITALOPRAM [Concomitant]
     Active Substance: CITALOPRAM HYDROBROMIDE
  7. ADCIRCA [Concomitant]
     Active Substance: TADALAFIL
  8. RABEPRAZOLE [Concomitant]
     Active Substance: RABEPRAZOLE
  9. FUROSEMIDE. [Concomitant]
     Active Substance: FUROSEMIDE
  10. STATEX [Concomitant]
     Active Substance: MORPHINE SULFATE
  11. GLUCOSAMINE [Concomitant]
     Active Substance: GLUCOSAMINE
  12. ASA [Concomitant]
     Active Substance: ASPIRIN
  13. LEVOTHYROXINE. [Concomitant]
     Active Substance: LEVOTHYROXINE
  14. MULTIVITAMIN [Concomitant]
     Active Substance: VITAMINS
  15. SOFLAX [Concomitant]
     Active Substance: DOCUSATE
  16. TYLENOL ARTHRITIS PAIN [Concomitant]
     Active Substance: ACETAMINOPHEN
  17. OPSUMIT [Suspect]
     Active Substance: MACITENTAN
     Indication: PULMONARY ARTERIAL HYPERTENSION
     Dosage: 10 MG, UNK
     Route: 048
     Dates: start: 20151209
  18. LANSOPRAZOLE. [Concomitant]
     Active Substance: LANSOPRAZOLE
  19. BISACODYL. [Concomitant]
     Active Substance: BISACODYL
  20. BUPROPION HYDROCHLORIDE. [Concomitant]
     Active Substance: BUPROPION HYDROCHLORIDE
  21. CALCITRIOL. [Concomitant]
     Active Substance: CALCITRIOL
  22. OMEGA 3 [Concomitant]
     Active Substance: OMEGA-3 FATTY ACIDS

REACTIONS (1)
  - Lung neoplasm malignant [Not Recovered/Not Resolved]

NARRATIVE: CASE EVENT DATE: 201805
